FAERS Safety Report 25539232 (Version 1)
Quarter: 2025Q3

REPORT INFORMATION
  Report Type: Spontaneous
  Country: EU (occurrence: EU)
  Receive Date: 20250710
  Receipt Date: 20250710
  Transmission Date: 20251021
  Serious: Yes (Disabling)
  Sender: NOVARTIS
  Company Number: EU-002147023-NVSC2025ES101276

PATIENT
  Age: 35 Year
  Sex: Female

DRUGS (1)
  1. COSENTYX [Suspect]
     Active Substance: SECUKINUMAB
     Indication: Hidradenitis
     Route: 058
     Dates: start: 202408, end: 202506

REACTIONS (2)
  - Diarrhoea [Not Recovered/Not Resolved]
  - Faecal calprotectin abnormal [Unknown]

NARRATIVE: CASE EVENT DATE: 20250101
